FAERS Safety Report 16210520 (Version 1)
Quarter: 2019Q2

REPORT INFORMATION
  Report Type: Spontaneous
  Country: KR (occurrence: KR)
  Receive Date: 20190418
  Receipt Date: 20190418
  Transmission Date: 20190711
  Serious: Yes (Other)
  Sender: FDA-Public Use
  Company Number: KR-SUN PHARMACEUTICAL INDUSTRIES LTD-2019RR-205333

PATIENT
  Age: 47 Year
  Sex: Female

DRUGS (6)
  1. CARBOPLATIN. [Suspect]
     Active Substance: CARBOPLATIN
     Indication: OVARIAN CANCER
     Dosage: AREA UNDER CURVE=5, EVERY 3 WEEKS BEGINNING 3 WEEKS POSTOPERATIVELY, 6 CYCLES
     Route: 065
  2. CARBOPLATIN. [Suspect]
     Active Substance: CARBOPLATIN
     Indication: METASTASES TO DIAPHRAGM
  3. PACLITAXEL. [Suspect]
     Active Substance: PACLITAXEL
     Indication: OVARIAN CANCER
     Dosage: 175 MILLIGRAM/SQ. METER, EVERY 3 WEEKS
     Route: 065
  4. PACLITAXEL. [Suspect]
     Active Substance: PACLITAXEL
     Indication: METASTASES TO DIAPHRAGM
  5. BEVACIZUMAB. [Suspect]
     Active Substance: BEVACIZUMAB
     Indication: METASTASES TO PERITONEUM
     Dosage: 10 MILLIGRAM/KILOGRAM, EVERY 2 WEEKES, 23 CYCLES
     Route: 065
  6. DOXORUBICIN [Suspect]
     Active Substance: DOXORUBICIN
     Indication: METASTASES TO PERITONEUM
     Dosage: 40 MILLIGRAM/SQ. METER, EVERY 4 WEEKS, 12 CYCLES
     Route: 065

REACTIONS (7)
  - Disease progression [Unknown]
  - Blood creatinine increased [Unknown]
  - Pancytopenia [Unknown]
  - Drug ineffective [Unknown]
  - Pyelonephritis acute [Unknown]
  - Acute kidney injury [Unknown]
  - Sepsis [Unknown]
